FAERS Safety Report 11861855 (Version 3)
Quarter: 2018Q2

REPORT INFORMATION
  Report Type: Spontaneous
  Country: IT (occurrence: IT)
  Receive Date: 20151222
  Receipt Date: 20180508
  Transmission Date: 20180711
  Serious: Yes (Hospitalization)
  Sender: FDA-Public Use
  Company Number: PHHY2015IT164701

PATIENT
  Age: 30 Year
  Sex: Female

DRUGS (9)
  1. FLUPHENAZINE DECANOATE. [Suspect]
     Active Substance: FLUPHENAZINE DECANOATE
     Dosage: 25 MG I.M MONTHLY
     Route: 030
     Dates: start: 2005, end: 201312
  2. CLONAZEPAM. [Suspect]
     Active Substance: CLONAZEPAM
     Indication: BIPOLAR DISORDER
     Dosage: 1 MG, QD
     Route: 065
  3. LORAZEPAM. [Suspect]
     Active Substance: LORAZEPAM
     Indication: BIPOLAR DISORDER
     Dosage: 2.5 MG, QD
     Route: 065
  4. FLUPHENAZINE DECANOATE. [Suspect]
     Active Substance: FLUPHENAZINE DECANOATE
     Dosage: 25 MG I.M.ONCE EVERY 21 DAYS
     Route: 030
     Dates: start: 201310, end: 201312
  5. PALIPERIDONE. [Suspect]
     Active Substance: PALIPERIDONE
     Indication: BIPOLAR DISORDER
     Dosage: 6 MG, QD
     Route: 065
     Dates: start: 201310, end: 201312
  6. HALOPERIDOL. [Suspect]
     Active Substance: HALOPERIDOL
     Indication: BIPOLAR DISORDER
     Dosage: 4 MG, TID
     Route: 065
     Dates: start: 2005, end: 201312
  7. FLUPHENAZINE DECANOATE. [Suspect]
     Active Substance: FLUPHENAZINE DECANOATE
     Indication: BIPOLAR DISORDER
     Dosage: 25 MG, QMO
     Route: 030
  8. FLUPHENAZINE DECANOATE. [Suspect]
     Active Substance: FLUPHENAZINE DECANOATE
     Dosage: 25 MG, EVERY 21 DAYS
     Route: 030
  9. QUETIAPINE. [Suspect]
     Active Substance: QUETIAPINE
     Indication: BIPOLAR DISORDER
     Dosage: 300 MG, TID
     Route: 065
     Dates: start: 2005, end: 201312

REACTIONS (1)
  - Neuroleptic malignant syndrome [Recovered/Resolved with Sequelae]

NARRATIVE: CASE EVENT DATE: 201310
